FAERS Safety Report 23517225 (Version 1)
Quarter: 2024Q1

REPORT INFORMATION
  Report Type: 
  Country: None (occurrence: None)
  Receive Date: 20240213
  Receipt Date: 20240213
  Transmission Date: 20240410
  Serious: No
  Sender: FDA-Public Use
  Company Number: DE-ROCHE-2680515

PATIENT

DRUGS (5)
  1. OCREVUS [Suspect]
     Active Substance: OCRELIZUMAB
     Dosage: 600 MG IN 184 DAYS
     Dates: start: 20200616
  2. OCREVUS [Suspect]
     Active Substance: OCRELIZUMAB
     Dates: start: 2020
  3. OCREVUS [Suspect]
     Active Substance: OCRELIZUMAB
     Dosage: SUBSEQUENTLY ADMINISTERED ON: 31/JAN/2024.
  4. PREGABALIN [Concomitant]
     Active Substance: PREGABALIN
  5. CORTISONE [Concomitant]
     Active Substance: CORTISONE
     Dates: start: 20210705, end: 20210707

REACTIONS (4)
  - Fatigue [None]
  - Burning sensation [None]
  - Nausea [None]
  - COVID-19 [None]

NARRATIVE: CASE EVENT DATE: 20200616
